FAERS Safety Report 16671587 (Version 1)
Quarter: 2019Q3

REPORT INFORMATION
  Report Type: Spontaneous
  Country: US (occurrence: US)
  Receive Date: 20190806
  Receipt Date: 20190806
  Transmission Date: 20191004
  Serious: No
  Sender: FDA-Public Use
  Company Number: US-JNJFOC-20190730141

PATIENT
  Sex: Female
  Weight: 72.64 kg

DRUGS (2)
  1. MENS ROGAINE EXTRA STRENGTH [Suspect]
     Active Substance: MINOXIDIL
     Indication: ALOPECIA
     Dosage: A LITTLE MORE THAN WHAT WAS DIRECTED EVERYDAY
     Route: 061
  2. MENS ROGAINE EXTRA STRENGTH [Suspect]
     Active Substance: MINOXIDIL
     Indication: ALOPECIA
     Dosage: A LITTLE MORE THAN WHAT WAS DIRECTED EVERY DAY
     Route: 061

REACTIONS (4)
  - Overdose [Unknown]
  - Product use issue [Unknown]
  - Intentional product misuse [Unknown]
  - Alopecia [Unknown]
